FAERS Safety Report 8885742 (Version 4)
Quarter: 2013Q1

REPORT INFORMATION
  Report Type: Spontaneous
  Country: US (occurrence: US)
  Receive Date: 20121101
  Receipt Date: 20130211
  Transmission Date: 20140127
  Serious: No
  Sender: FDA-Public Use
  Company Number: US-PFIZER INC-2012268441

PATIENT
  Age: 49 Year
  Sex: Female

DRUGS (1)
  1. ARTHROTEC [Suspect]
     Indication: RHEUMATOID ARTHRITIS
     Dosage: 75MG/200MCG , 1X/DAY
     Route: 048

REACTIONS (1)
  - Nasopharyngitis [Unknown]
